FAERS Safety Report 6194649-6 (Version None)
Quarter: 2009Q2

REPORT INFORMATION
  Report Type: 
  Country: None (occurrence: None)
  Receive Date: 20090519
  Receipt Date: 20090509
  Transmission Date: 20091009
  Serious: Yes (Other)
  Sender: FDA-Public Use
  Company Number: US-PFIZER INC-2009182739

PATIENT
  Age: 73 Year
  Sex: Female

DRUGS (2)
  1. SPIRONOLACTONE [Suspect]
     Indication: HYPERTENSION
     Dosage: 25 MG, 1X/DAY
     Dates: start: 20090115
  2. SPIRONOLACTONE [Suspect]
     Indication: SWELLING
     Dosage: 25 MG, 2X/DAY
     Route: 048

REACTIONS (8)
  - ABDOMINAL PAIN UPPER [None]
  - BLOOD PRESSURE INADEQUATELY CONTROLLED [None]
  - CHEST DISCOMFORT [None]
  - COUGH [None]
  - EPISTAXIS [None]
  - HAEMOPTYSIS [None]
  - PAROSMIA [None]
  - RHINORRHOEA [None]
